FAERS Safety Report 6227294-4 (Version None)
Quarter: 2009Q2

REPORT INFORMATION
  Report Type: 
  Country: None (occurrence: None)
  Receive Date: 20090610
  Receipt Date: 20090602
  Transmission Date: 20091009
  Serious: Yes (Hospitalization)
  Sender: FDA-Public Use
  Company Number: FR-WYE-G03773609

PATIENT
  Age: 16 Year
  Sex: Female

DRUGS (2)
  1. ADVIL [Suspect]
     Dosage: 400 MG 3X PER 1 DAY ORAL
     Route: 048
     Dates: start: 20090404, end: 20090405
  2. EXJADE [Suspect]
     Indication: IRON OVERLOAD
     Dosage: 625 MG 1X PER 1 DAY ORAL
     Route: 048
     Dates: start: 20070101, end: 20090407

REACTIONS (8)
  - ABDOMINAL PAIN [None]
  - ANURIA [None]
  - CONSTIPATION [None]
  - DIARRHOEA [None]
  - HAEMOGLOBIN DECREASED [None]
  - KIDNEY ENLARGEMENT [None]
  - PYREXIA [None]
  - RENAL FAILURE ACUTE [None]
